FAERS Safety Report 25643698 (Version 3)
Quarter: 2025Q3

REPORT INFORMATION
  Report Type: Spontaneous
  Country: EU (occurrence: EU)
  Receive Date: 20250805
  Receipt Date: 20250824
  Transmission Date: 20251021
  Serious: Yes (Hospitalization, Other)
  Sender: AUROBINDO
  Company Number: EU-GSK-FR2025GSK090546

PATIENT
  Age: 57 Year
  Sex: Female
  Weight: 79.4 kg

DRUGS (4)
  1. CARBOPLATIN [Suspect]
     Active Substance: CARBOPLATIN
     Indication: Endometrial cancer metastatic
     Route: 042
     Dates: start: 20240717, end: 20250305
  2. PACLITAXEL [Suspect]
     Active Substance: PACLITAXEL
     Indication: Endometrial cancer metastatic
     Route: 042
     Dates: start: 20240717, end: 20250305
  3. DOSTARLIMAB [Suspect]
     Active Substance: DOSTARLIMAB
     Indication: Endometrial cancer metastatic
     Route: 065
     Dates: start: 20240717
  4. DOSTARLIMAB [Suspect]
     Active Substance: DOSTARLIMAB
     Route: 065
     Dates: end: 20250305

REACTIONS (2)
  - Diabetes mellitus [Not Recovered/Not Resolved]
  - Diabetic ketoacidosis [Not Recovered/Not Resolved]

NARRATIVE: CASE EVENT DATE: 20250301
